FAERS Safety Report 5473496-4 (Version None)
Quarter: 2007Q3

REPORT INFORMATION
  Report Type: 
  Country: None (occurrence: None)
  Receive Date: 20070828
  Receipt Date: 20070525
  Transmission Date: 20080115
  Serious: Yes (Other)
  Sender: FDA-Public Use
  Company Number: 2007027627

PATIENT
  Age: 56 Year
  Weight: 112.5 kg

DRUGS (6)
  1. EXUBERA [Suspect]
     Indication: DIABETES MELLITUS INADEQUATE CONTROL
     Dosage: 12 MG (4 MG, 3 IN 1 D)
     Dates: start: 20070302, end: 20070315
  2. NEXIUM [Concomitant]
  3. LIPITOR [Concomitant]
  4. ENALAPRIL MALEATE [Concomitant]
  5. ZETIA [Concomitant]
  6. METFORMIN HCL [Concomitant]

REACTIONS (2)
  - DYSPNOEA [None]
  - WHEEZING [None]
